FAERS Safety Report 23886328 (Version 1)
Quarter: 2024Q2

REPORT INFORMATION
  Report Type: Spontaneous
  Country: US (occurrence: US)
  Receive Date: 20240522
  Receipt Date: 20240522
  Transmission Date: 20240716
  Serious: Yes (Hospitalization)
  Sender: FDA-Public Use
  Company Number: US-Eisai-EC-2024-165752

PATIENT
  Age: 18 Year
  Sex: Male

DRUGS (1)
  1. LENVATINIB [Suspect]
     Active Substance: LENVATINIB
     Indication: Osteosarcoma metastatic
     Dosage: DOSE AND FREQUENCY UNKNOWN.
     Route: 048

REACTIONS (1)
  - Fistula of small intestine [Recovering/Resolving]
